FAERS Safety Report 24828949 (Version 1)
Quarter: 2025Q1

REPORT INFORMATION
  Report Type: Report from Study
  Country: US (occurrence: US)
  Receive Date: 20250110
  Receipt Date: 20250110
  Transmission Date: 20250409
  Serious: Yes (Death, Hospitalization, Other)
  Sender: UCB
  Company Number: US-UCBSA-2024060933

PATIENT
  Sex: Male

DRUGS (2)
  1. BRIVARACETAM [Suspect]
     Active Substance: BRIVARACETAM
     Indication: Seizure
     Dosage: 50 MILLIGRAM, 2X/DAY (BID)
     Dates: end: 20240521
  2. MORPHINE [Concomitant]
     Active Substance: MORPHINE
     Indication: Product used for unknown indication

REACTIONS (9)
  - Respiratory failure [Fatal]
  - Immobilisation prolonged [Unknown]
  - Pulmonary oedema [Unknown]
  - General physical health deterioration [Unknown]
  - Sleep deficit [Unknown]
  - Dyspnoea [Unknown]
  - Aspiration pleural cavity [Unknown]
  - Fluid intake reduced [Unknown]
  - Feeding disorder [Unknown]

NARRATIVE: CASE EVENT DATE: 20240101
